FAERS Safety Report 6711131-5 (Version None)
Quarter: 2010Q2

REPORT INFORMATION
  Report Type: 
  Country: None (occurrence: None)
  Receive Date: 20100505
  Receipt Date: 20100420
  Transmission Date: 20101027
  Serious: Yes (Death, Hospitalization)
  Sender: FDA-Public Use
  Company Number: DE-BIOGENIDEC-2010BI011913

PATIENT
  Age: 20 Year
  Sex: Male

DRUGS (1)
  1. AVONEX [Suspect]
     Indication: RELAPSING-REMITTING MULTIPLE SCLEROSIS
     Route: 030
     Dates: start: 20080926

REACTIONS (5)
  - CYSTIC FIBROSIS [None]
  - DECREASED APPETITE [None]
  - DIZZINESS [None]
  - LIVER DISORDER [None]
  - PNEUMONIA [None]
